FAERS Safety Report 5628575-5 (Version None)
Quarter: 2008Q1

REPORT INFORMATION
  Report Type: 
  Country: None (occurrence: None)
  Receive Date: 20080215
  Receipt Date: 20080208
  Transmission Date: 20080703
  Serious: Yes (Other)
  Sender: FDA-Public Use
  Company Number: US-PFIZER INC-2008011629

PATIENT
  Sex: Female
  Weight: 97.272 kg

DRUGS (5)
  1. CELEBREX [Suspect]
     Indication: ARTHRITIS
     Dates: start: 20080123, end: 20080205
  2. CELEBREX [Suspect]
     Indication: OSTEOARTHRITIS
  3. AMOXICILLIN [Suspect]
     Indication: TOOTH INFECTION
  4. VITAMIN CAP [Concomitant]
  5. ENZYMES [Concomitant]

REACTIONS (5)
  - HYPERSENSITIVITY [None]
  - IMPAIRED HEALING [None]
  - SWELLING FACE [None]
  - THROAT TIGHTNESS [None]
  - URTICARIA [None]
